FAERS Safety Report 5526784-7 (Version None)
Quarter: 2007Q4

REPORT INFORMATION
  Report Type: 
  Country: None (occurrence: None)
  Receive Date: 20071127
  Receipt Date: 20071115
  Transmission Date: 20080405
  Serious: Yes (Hospitalization)
  Sender: FDA-Public Use
  Company Number: CA-ROCHE-531852

PATIENT
  Age: 64 Year
  Sex: Female
  Weight: 107 kg

DRUGS (11)
  1. CAPECITABINE [Suspect]
     Indication: COLORECTAL CANCER METASTATIC
     Dosage: 2150MG, TWICE DAILY, ON DAYS 1-14 EVERY 3 WEEKS.
     Route: 048
     Dates: start: 20031118, end: 20031201
  2. IRINOTECAN HCL [Suspect]
     Indication: COLORECTAL CANCER METASTATIC
     Dosage: DATE OF LAST DOSE PRIOR TO SAE: 01 DECEMBER 2003.
     Route: 042
     Dates: start: 20031118
  3. CELECOXIB [Suspect]
     Indication: COLORECTAL CANCER METASTATIC
     Dosage: DATE OF LAST DOSE PRIOR TO SAE: 05 DECEMBER 2003.
     Route: 048
     Dates: start: 20031118, end: 20031205
  4. NPH INSULIN [Concomitant]
     Indication: DIABETES MELLITUS
     Route: 058
  5. INSULIN [Concomitant]
     Dosage: DRUG REPORTED AS TORONTO INSULIN. 20MG TAKEN IN THE MORNING AND 10MG IN THE EVENING.
     Route: 058
  6. ADALAT [Concomitant]
     Indication: HYPERTENSION
     Route: 048
  7. LIPITOR [Concomitant]
     Route: 048
  8. GLUCOSAMINE [Concomitant]
     Indication: ARTHRITIS
     Route: 048
  9. ASPIRIN [Concomitant]
     Indication: PROPHYLAXIS
     Route: 048
  10. CALCIUM [Concomitant]
     Indication: NUTRITIONAL SUPPORT
     Dosage: 1 TABLET DAILY. REPORTED AS CORAL CALCIUM.
     Route: 048
  11. CENTRUM [Concomitant]
     Indication: VITAMIN SUPPLEMENTATION
     Dosage: 1 TABLET DAILY.
     Route: 048

REACTIONS (5)
  - ASTHENIA [None]
  - DIARRHOEA [None]
  - RENAL FAILURE [None]
  - SMALL INTESTINAL OBSTRUCTION [None]
  - VOMITING [None]
